FAERS Safety Report 9876869 (Version 1)
Quarter: 2014Q1

REPORT INFORMATION
  Report Type: Spontaneous
  Country: AU (occurrence: None)
  Receive Date: 20140204
  Receipt Date: 20140204
  Transmission Date: 20141002
  Serious: Yes (Hospitalization)
  Sender: FDA-Public Use
  Company Number: AUR-APL-2014-01013

PATIENT
  Age: 81 Year
  Sex: Female

DRUGS (10)
  1. RAMIPRIL (RAMIPRIL) [Suspect]
     Indication: ESSENTIAL HYPERTENSION
     Dates: start: 20130911, end: 20130918
  2. CEPHALEXIN [Suspect]
     Indication: PROPHYLAXIS
     Dates: start: 20130911, end: 20130918
  3. ACTONEL COMB I (COMBI/02223601/) [Concomitant]
  4. AMLODIPINE(AMLODIPINE) [Concomitant]
  5. ASPIRIN(ACETYLSALICYLIC ACID) [Concomitant]
  6. CARVEDILOL HYDROCHLORIDE (CARVEDILOL HYDROCHLORIDE) [Concomitant]
  7. CEPHALEXIN(CEFALEXIN) [Concomitant]
  8. LATANOPROST(LATANOPROST) [Concomitant]
  9. PREDNISOLONE(PREDNISOLONE) [Concomitant]
  10. SIMVASTATIN(SIMVASTATIN) [Concomitant]

REACTIONS (2)
  - Swollen tongue [None]
  - Lip swelling [None]
